FAERS Safety Report 9230357 (Version 1)
Quarter: 2013Q1

REPORT INFORMATION
  Report Type: Spontaneous
  Country: US (occurrence: None)
  Receive Date: 20121019
  Receipt Date: 20121019
  Transmission Date: 20140127
  Serious: Yes (Other)
  Sender: FDA-Public Use
  Company Number: 2012P1052264

PATIENT
  Age: 78 Year
  Sex: Female
  Weight: 66.23 kg

DRUGS (14)
  1. FENTANYL PATCH 25 MCG/HR (NO PREF. NAME) [Suspect]
     Indication: PAIN
     Dosage: 1 PATCH; X1; TDER
     Route: 062
     Dates: start: 20120730, end: 20120801
  2. FENTANYL PATCH 25 MCG/HR (NO PREF. NAME) [Suspect]
     Indication: NEOPLASM MALIGNANT
     Dosage: 1 PATCH; X1; TDER
     Route: 062
     Dates: start: 20120730, end: 20120801
  3. TEMAZEPAM [Concomitant]
  4. METOPROLOL [Concomitant]
  5. AMLODIPINE [Concomitant]
  6. LISINOPRIL [Concomitant]
  7. RANITIDINE [Concomitant]
  8. ZOCOR [Concomitant]
  9. PLAVIX [Concomitant]
  10. ZETIA [Concomitant]
  11. IRON [Concomitant]
  12. VITAMIN B12 [Concomitant]
  13. FISH OIL [Concomitant]
  14. CALCIUM [Concomitant]

REACTIONS (3)
  - Drug ineffective [None]
  - Nausea [None]
  - Vomiting [None]
